FAERS Safety Report 13384786 (Version 1)
Quarter: 2017Q1

REPORT INFORMATION
  Report Type: Spontaneous
  Country: US (occurrence: US)
  Receive Date: 20170329
  Receipt Date: 20170329
  Transmission Date: 20170429
  Serious: Yes (Life-Threatening, Other)
  Sender: FDA-Public Use
  Company Number: None

PATIENT
  Age: 47 Year
  Sex: Female
  Weight: 66.15 kg

DRUGS (10)
  1. CYMBALTA [Concomitant]
     Active Substance: DULOXETINE HYDROCHLORIDE
  2. GABAPENTIN 300MG CAPSULES [Suspect]
     Active Substance: GABAPENTIN
     Indication: NEURALGIA
     Dosage: ?          QUANTITY:2 CAPSULE(S);?
     Route: 048
     Dates: start: 20170301, end: 20170329
  3. TRAMADOL. [Concomitant]
     Active Substance: TRAMADOL
  4. VIT B [Concomitant]
     Active Substance: VITAMIN B
  5. ENBREL [Concomitant]
     Active Substance: ETANERCEPT
  6. CALCIUM CITRITE [Concomitant]
  7. TUMERIC [Concomitant]
     Active Substance: TURMERIC
  8. LORAZEPAM. [Concomitant]
     Active Substance: LORAZEPAM
  9. OXYCODONE [Concomitant]
     Active Substance: OXYCODONE
  10. CENTRUM MULTIVITAMINS [Concomitant]
     Active Substance: VITAMINS

REACTIONS (6)
  - Dizziness [None]
  - Depression [None]
  - Disturbance in attention [None]
  - Fatigue [None]
  - Confusional state [None]
  - Suicidal ideation [None]

NARRATIVE: CASE EVENT DATE: 20170320
